FAERS Safety Report 20747956 (Version 1)
Quarter: 2022Q2

REPORT INFORMATION
  Report Type: Spontaneous
  Country: JP (occurrence: JP)
  Receive Date: 20220425
  Receipt Date: 20220425
  Transmission Date: 20220721
  Serious: Yes (Disabling, Other)
  Sender: FDA-Public Use
  Company Number: JP-NOVARTISPH-NVSJ2022JP089214

PATIENT

DRUGS (1)
  1. BEOVU [Suspect]
     Active Substance: BROLUCIZUMAB-DBLL
     Indication: Product used for unknown indication
     Dosage: 6 MG
     Route: 031
     Dates: start: 20220330, end: 20220330

REACTIONS (4)
  - Anterior chamber inflammation [Unknown]
  - Vitritis [Unknown]
  - Vitreous opacities [Unknown]
  - Blindness [Unknown]
